FAERS Safety Report 24069788 (Version 1)
Quarter: 2024Q3

REPORT INFORMATION
  Report Type: Report from Study
  Country: IT (occurrence: IT)
  Receive Date: 20240710
  Receipt Date: 20240710
  Transmission Date: 20241016
  Serious: No
  Sender: ROCHE
  Company Number: None

PATIENT
  Age: 60 Year
  Sex: Female

DRUGS (1)
  1. ALECENSA [Suspect]
     Active Substance: ALECTINIB HYDROCHLORIDE
     Indication: Lung adenocarcinoma
     Dosage: THE PATIENT WAS TREATED WITH ALCENSA 150 MG 6 CAPSULES PER DAY
     Route: 065
     Dates: start: 20180718, end: 20200212

REACTIONS (1)
  - Swelling face [Recovered/Resolved]
